FAERS Safety Report 6540946-1 (Version None)
Quarter: 2010Q1

REPORT INFORMATION
  Report Type: 
  Country: None (occurrence: None)
  Receive Date: 20100118
  Receipt Date: 20091217
  Transmission Date: 20100710
  Serious: No
  Sender: FDA-Public Use
  Company Number: US-BAYER-200943436NA

PATIENT
  Age: 35 Year
  Sex: Female

DRUGS (2)
  1. MIRENA [Suspect]
     Indication: CONTRACEPTION
     Route: 015
     Dates: start: 20091119, end: 20091209
  2. MIRENA [Suspect]
     Route: 015
     Dates: start: 20091209

REACTIONS (2)
  - ABDOMINAL PAIN LOWER [None]
  - DEVICE EXPULSION [None]
